FAERS Safety Report 4348044-2 (Version None)
Quarter: 2004Q2

REPORT INFORMATION
  Report Type: 
  Country: None (occurrence: None)
  Receive Date: 20040422
  Receipt Date: 20040419
  Transmission Date: 20050107
  Serious: Yes (Death, Hospitalization)
  Sender: FDA-Public Use
  Company Number: 200411170GDS

PATIENT
  Age: 71 Year
  Sex: Male

DRUGS (5)
  1. ASPIRIN [Suspect]
     Indication: ANTIPLATELET THERAPY
     Dosage: 325 MG, TOTAL DAILY,
  2. WARFARIN SODIUM [Suspect]
     Indication: ANTICOAGULANT THERAPY
  3. CLOPIDOGREL [Suspect]
     Indication: ANTIPLATELET THERAPY
     Dosage: 300 MG, TID, ORAL
     Route: 048
  4. HEPARIN [Concomitant]
  5. ABCIXIMAB [Concomitant]

REACTIONS (5)
  - APATHY [None]
  - CEREBRAL HAEMORRHAGE [None]
  - LETHARGY [None]
  - LOSS OF CONSCIOUSNESS [None]
  - QUADRIPARESIS [None]
